FAERS Safety Report 7104301-8 (Version None)
Quarter: 2010Q4

REPORT INFORMATION
  Report Type: 
  Country: None (occurrence: None)
  Receive Date: 20101115
  Receipt Date: 20100930
  Transmission Date: 20110411
  Serious: No
  Sender: FDA-Public Use
  Company Number: US-ALLERGAN-1008179US

PATIENT
  Age: 56 Year
  Sex: Female

DRUGS (11)
  1. BOTOXA? [Suspect]
     Indication: TORTICOLLIS
     Dosage: 150 UNITS, SINGLE
     Route: 030
     Dates: start: 20100511, end: 20100511
  2. EFFEXOR [Concomitant]
  3. LEVOXYL [Concomitant]
  4. TAMOXIFEN [Concomitant]
  5. KLONZIPEN [Concomitant]
  6. KLONOPIN [Concomitant]
  7. ALONDRATE [Concomitant]
  8. TIAZEDENE [Concomitant]
  9. CALCIUM +VIT D [Concomitant]
  10. BLACK COHOSH [Concomitant]
  11. FIORICET [Concomitant]

REACTIONS (6)
  - COUGH [None]
  - DIZZINESS [None]
  - DRY MOUTH [None]
  - HEADACHE [None]
  - NECK PAIN [None]
  - VISION BLURRED [None]
